FAERS Safety Report 10248892 (Version 1)
Quarter: 2014Q2

REPORT INFORMATION
  Report Type: Spontaneous
  Country: US (occurrence: US)
  Receive Date: 20140620
  Receipt Date: 20140620
  Transmission Date: 20141212
  Serious: Yes (Hospitalization, Congenital Anomaly)
  Sender: FDA-Public Use
  Company Number: US-JNJFOC-20140612396

PATIENT
  Sex: Male

DRUGS (8)
  1. TOPAMAX [Suspect]
     Indication: CONVULSION
     Route: 064
  2. TOPAMAX [Suspect]
     Indication: JUVENILE MYOCLONIC EPILEPSY
     Route: 064
  3. PRIMIDONE [Suspect]
     Indication: CONVULSION
     Route: 064
  4. PRIMIDONE [Suspect]
     Indication: JUVENILE MYOCLONIC EPILEPSY
     Route: 064
  5. LYRICA [Suspect]
     Indication: JUVENILE MYOCLONIC EPILEPSY
     Route: 064
  6. LYRICA [Suspect]
     Indication: CONVULSION
     Route: 064
  7. SEROQUEL [Suspect]
     Indication: CONVULSION
     Route: 064
  8. SEROQUEL [Suspect]
     Indication: JUVENILE MYOCLONIC EPILEPSY
     Route: 064

REACTIONS (12)
  - Atrial septal defect [Recovering/Resolving]
  - Cleft palate [Unknown]
  - Hypoparathyroidism [Unknown]
  - Foetal exposure during pregnancy [Recovered/Resolved]
  - Skull malformation [Unknown]
  - Cleft lip [Recovering/Resolving]
  - Craniosynostosis [Unknown]
  - Syndactyly [Unknown]
  - Congenital eye disorder [Unknown]
  - Skull malformation [Unknown]
  - Ventricular septal defect [Recovering/Resolving]
  - Patent ductus arteriosus [Unknown]
